FAERS Safety Report 23887895 (Version 1)
Quarter: 2024Q2

REPORT INFORMATION
  Report Type: Spontaneous
  Country: ZA (occurrence: None)
  Receive Date: 20240523
  Receipt Date: 20240523
  Transmission Date: 20240716
  Serious: Yes (Hospitalization)
  Sender: FDA-Public Use
  Company Number: 2024A115564

PATIENT
  Age: 74 Year
  Sex: Female

DRUGS (8)
  1. BUDESONIDE\FORMOTEROL FUMARATE DIHYDRATE [Suspect]
     Active Substance: BUDESONIDE\FORMOTEROL FUMARATE DIHYDRATE
     Dosage: UNKNOWN UNKNOWN
     Route: 055
  2. MONTELUKAST SODIUM [Concomitant]
     Active Substance: MONTELUKAST SODIUM
  3. CO-COPALIA [Concomitant]
     Dosage: 5/160/12.5 MG
  4. ASPIRIN [Concomitant]
     Active Substance: ASPIRIN
  5. LIPOGEN [Concomitant]
  6. FUROSEMIDE [Concomitant]
     Active Substance: FUROSEMIDE
  7. ZOPICLONE [Concomitant]
     Active Substance: ZOPICLONE
  8. ESOMEPRAZOLE [Concomitant]
     Active Substance: ESOMEPRAZOLE

REACTIONS (1)
  - Cardiac failure [Unknown]
